FAERS Safety Report 7970307-X (Version None)
Quarter: 2011Q4

REPORT INFORMATION
  Report Type: 
  Country: None (occurrence: None)
  Receive Date: 20111212
  Receipt Date: 20111205
  Transmission Date: 20120403
  Serious: Yes (Hospitalization)
  Sender: FDA-Public Use
  Company Number: US-JNJFOC-20100502869

PATIENT
  Sex: Male
  Weight: 15.88 kg

DRUGS (6)
  1. CONCENTRATED TYLENOL INFANT DROPS [Suspect]
  2. CHILDREN'S MOTRIN [Suspect]
     Route: 048
  3. CHILDREN'S MOTRIN [Suspect]
     Indication: PYREXIA
     Route: 048
     Dates: start: 20100217
  4. CHILDREN'S MOTRIN [Suspect]
     Route: 048
  5. CHILDREN'S MOTRIN [Suspect]
     Indication: PYREXIA
     Route: 048
     Dates: start: 20100217
  6. CONCENTRATED TYLENOL INFANT DROPS [Suspect]
     Indication: PRODUCT USED FOR UNKNOWN INDICATION

REACTIONS (4)
  - ILEUS [None]
  - DEHYDRATION [None]
  - PRODUCT QUALITY ISSUE [None]
  - GASTROENTERITIS VIRAL [None]
